FAERS Safety Report 7367866-7 (Version None)
Quarter: 2011Q1

REPORT INFORMATION
  Report Type: 
  Country: None (occurrence: None)
  Receive Date: 20110322
  Receipt Date: 20110308
  Transmission Date: 20110831
  Serious: Yes (Hospitalization)
  Sender: FDA-Public Use
  Company Number: FR-GENENTECH-315264

PATIENT
  Sex: Male

DRUGS (10)
  1. CISPLATIN [Suspect]
     Dosage: UNK
     Route: 042
     Dates: start: 20101026
  2. RITUXIMAB [Suspect]
     Dosage: 715 MG, QAM
     Route: 042
     Dates: start: 20100923, end: 20100923
  3. DEXAMETHASONE [Suspect]
     Indication: MANTLE CELL LYMPHOMA
     Dosage: 40 MG, QAM
     Route: 042
     Dates: start: 20100805, end: 20100807
  4. RITUXIMAB [Suspect]
     Dosage: 715 MG, QAM
     Route: 042
     Dates: start: 20101026
  5. CYTARABINE [Suspect]
     Indication: MANTLE CELL LYMPHOMA
     Dosage: 760 MG, QAM
     Route: 042
     Dates: start: 20100804, end: 20100805
  6. CYTARABINE [Suspect]
     Dosage: 760 MG, QAM
     Route: 042
     Dates: start: 20100923, end: 20100924
  7. CISPLATIN [Suspect]
     Dosage: 190 MG, QAM
     Route: 042
     Dates: start: 20100923, end: 20100923
  8. RITUXIMAB [Suspect]
     Indication: MANTLE CELL LYMPHOMA
     Dosage: 715 MG, QAM
     Route: 042
     Dates: start: 20100807, end: 20100807
  9. CISPLATIN [Suspect]
     Indication: MANTLE CELL LYMPHOMA
     Dosage: 190 MG, QAM
     Route: 042
     Dates: start: 20100804, end: 20100804
  10. DEXAMETHASONE [Suspect]
     Dosage: 40 MG, QAM
     Route: 042
     Dates: start: 20100923, end: 20100925

REACTIONS (4)
  - NEUTROPENIA [None]
  - STREPTOCOCCAL SEPSIS [None]
  - FOLLICULITIS [None]
  - RENAL FAILURE [None]
